FAERS Safety Report 15014700 (Version 2)
Quarter: 2018Q2

REPORT INFORMATION
  Report Type: Spontaneous
  Country: US (occurrence: US)
  Receive Date: 20180615
  Receipt Date: 20180625
  Transmission Date: 20180711
  Serious: Yes (Death, Hospitalization, Other)
  Sender: FDA-Public Use
  Company Number: US-CIPLA LTD.-2018US19094

PATIENT

DRUGS (9)
  1. TOPOTECAN [Suspect]
     Active Substance: TOPOTECAN HYDROCHLORIDE
     Indication: METASTASES TO MENINGES
     Dosage: 0.4 MG, TWICE WEEKLY FOR 4 WEEKS, INDUCTION PHASE
     Route: 037
  2. IRINOTECAN [Suspect]
     Active Substance: IRINOTECAN
     Dosage: UNK
     Route: 065
  3. LEUCOVORIN                         /00566701/ [Suspect]
     Active Substance: LEUCOVORIN
     Indication: ADENOCARCINOMA PANCREAS
     Dosage: UNK, CYCLICAL EVERY 2 WEEKS
     Route: 065
  4. OXALIPLATIN. [Suspect]
     Active Substance: OXALIPLATIN
     Indication: ADENOCARCINOMA PANCREAS
     Dosage: UNK, CYCLICAL EVERY 2 WEEKS
     Route: 065
  5. BEVACIZUMAB. [Suspect]
     Active Substance: BEVACIZUMAB
     Indication: MALIGNANT NEOPLASM PROGRESSION
     Dosage: UNK
     Route: 065
  6. FLUOROURACIL. [Suspect]
     Active Substance: FLUOROURACIL
     Indication: ADENOCARCINOMA PANCREAS
     Dosage: UNK, CYCLICAL EVERY 2 WEEKS
     Route: 065
  7. CAPECITABINE. [Suspect]
     Active Substance: CAPECITABINE
     Indication: METASTASES TO MENINGES
     Dosage: UNK
     Route: 065
  8. IRINOTECAN [Suspect]
     Active Substance: IRINOTECAN
     Indication: ADENOCARCINOMA PANCREAS
     Dosage: UNK, CYCLICAL EVERY 2 WEEKS
     Route: 065
  9. TOPOTECAN [Suspect]
     Active Substance: TOPOTECAN HYDROCHLORIDE
     Dosage: 0.4 MG, WEEKLY, CONSOLIDATION PHASE
     Route: 037

REACTIONS (8)
  - Thrombocytopenia [Unknown]
  - Sepsis [Recovered/Resolved]
  - Septic shock [Recovered/Resolved]
  - Neuropathy peripheral [Unknown]
  - Pneumonia aspiration [Recovered/Resolved]
  - Malignant neoplasm progression [Unknown]
  - Death [Fatal]
  - Metastases to meninges [Unknown]
